FAERS Safety Report 17485361 (Version 1)
Quarter: 2020Q1

REPORT INFORMATION
  Report Type: Spontaneous
  Country: US (occurrence: US)
  Receive Date: 20200302
  Receipt Date: 20200302
  Transmission Date: 20200409
  Serious: Yes (Hospitalization, Other)
  Sender: FDA-Public Use
  Company Number: US-JAZZ-2020-US-002930

PATIENT
  Age: 49 Year
  Sex: Female

DRUGS (1)
  1. XYREM [Suspect]
     Active Substance: SODIUM OXYBATE
     Indication: PRODUCT USED FOR UNKNOWN INDICATION
     Dosage: 9 GRAM
     Route: 048

REACTIONS (5)
  - Asthenia [Unknown]
  - Paraesthesia [Unknown]
  - Dizziness [Unknown]
  - Facial paralysis [Unknown]
  - Dyspnoea [Unknown]
